FAERS Safety Report 7308169-6 (Version None)
Quarter: 2011Q1

REPORT INFORMATION
  Report Type: 
  Country: None (occurrence: None)
  Receive Date: 20110223
  Receipt Date: 20110215
  Transmission Date: 20110831
  Serious: Yes (Hospitalization)
  Sender: FDA-Public Use
  Company Number: US-ROCHE-760068

PATIENT
  Sex: Female

DRUGS (2)
  1. CAPECITABINE [Suspect]
     Dosage: 2 WEEKS ON AND 1 WEEK OFF
     Route: 048
     Dates: start: 20100916
  2. CAPECITABINE [Suspect]
     Dosage: THERAPY RESTARTED AT LOWERED DOSE
     Route: 048

REACTIONS (5)
  - STOMATITIS [None]
  - SKIN EXFOLIATION [None]
  - PULMONARY OEDEMA [None]
  - DYSPNOEA [None]
  - METASTASES TO LUNG [None]
